FAERS Safety Report 6270012-4 (Version None)
Quarter: 2009Q3

REPORT INFORMATION
  Report Type: 
  Country: None (occurrence: None)
  Receive Date: 20090716
  Receipt Date: 20090708
  Transmission Date: 20100115
  Serious: Yes (Other)
  Sender: FDA-Public Use
  Company Number: MX-BAYER-200918718LA

PATIENT
  Age: 24 Year
  Sex: Female

DRUGS (1)
  1. YASMIN [Suspect]
     Indication: DRUG USE FOR UNKNOWN INDICATION
     Route: 048
     Dates: start: 20090501, end: 20090625

REACTIONS (6)
  - ANXIETY [None]
  - CARDIAC MURMUR [None]
  - DYSPNOEA [None]
  - HEADACHE [None]
  - MOOD ALTERED [None]
  - VAGINAL DISCHARGE [None]
